FAERS Safety Report 7098148-9 (Version None)
Quarter: 2010Q4

REPORT INFORMATION
  Report Type: 
  Country: None (occurrence: None)
  Receive Date: 20101112
  Receipt Date: 20100916
  Transmission Date: 20110411
  Serious: Yes (Hospitalization)
  Sender: FDA-Public Use
  Company Number: DE-GENZYME-FLUD-1000231

PATIENT
  Sex: Female

DRUGS (12)
  1. FLUDARA [Suspect]
     Indication: CHRONIC LYMPHOCYTIC LEUKAEMIA
     Dosage: 40 MG, UNK
     Route: 048
     Dates: start: 20100828, end: 20100901
  2. RITUXIMAB [Suspect]
     Indication: CHRONIC LYMPHOCYTIC LEUKAEMIA
     Dosage: UNK MG, UNK
     Route: 042
     Dates: start: 20100827, end: 20100828
  3. CYCLOPHOSPHAMIDE [Suspect]
     Indication: CHRONIC LYMPHOCYTIC LEUKAEMIA
     Dosage: 250 MG, UNK
     Route: 048
     Dates: start: 20100828, end: 20100901
  4. PARACETAMOL [Concomitant]
     Dosage: 3000 MG, UNK
     Route: 065
  5. MOBIC [Concomitant]
     Dosage: 7.5 MG, UNK
  6. LIPITOR [Concomitant]
     Dosage: 10 MG, UNK
  7. INDAPAMIDE [Concomitant]
     Dosage: 2.5 MG, UNK
     Route: 065
  8. CLIMARA [Concomitant]
     Dosage: 50 MG, UNK
     Route: 065
     Dates: start: 20100201
  9. FAMCICLOVIR [Concomitant]
     Dosage: 500 MG, UNK
     Dates: start: 20100828
  10. COTRIM [Concomitant]
     Dosage: UNK
     Route: 065
     Dates: start: 20100830
  11. INDAPAMIDE [Concomitant]
     Dosage: UNK
     Route: 065
     Dates: end: 20100906
  12. GLUCOSAMINE [Concomitant]
     Dosage: 750 MG, UNK
     Route: 065

REACTIONS (1)
  - SEPSIS [None]
